FAERS Safety Report 14839769 (Version 5)
Quarter: 2018Q3

REPORT INFORMATION
  Report Type: Report from Study
  Country: None (occurrence: US)
  Receive Date: 20180503
  Receipt Date: 20180925
  Transmission Date: 20181010
  Serious: Yes (Hospitalization, Other)
  Sender: FDA-Public Use
  Company Number: US-ABBVIE-17K-163-1960214-00

PATIENT
  Age: 67 Year
  Sex: Female
  Weight: 95.34 kg

DRUGS (16)
  1. LEVOTHYROXINE. [Concomitant]
     Active Substance: LEVOTHYROXINE
     Indication: HYPOTHYROIDISM
  2. SIMVASTATIN. [Concomitant]
     Active Substance: SIMVASTATIN
     Indication: BLOOD CHOLESTEROL INCREASED
  3. TRIAMTERENE AND HYDROCHLOROTHIAZID [Concomitant]
     Active Substance: HYDROCHLOROTHIAZIDE\TRIAMTERENE
     Indication: PRODUCT USED FOR UNKNOWN INDICATION
  4. HUMIRA [Suspect]
     Active Substance: ADALIMUMAB
     Route: 058
     Dates: start: 2017, end: 20180125
  5. VISTALIC [Concomitant]
     Indication: HYPERTENSION
  6. METHOTREXATE. [Concomitant]
     Active Substance: METHOTREXATE
     Indication: RHEUMATOID ARTHRITIS
  7. OXYCODONE [Concomitant]
     Active Substance: OXYCODONE
     Indication: PAIN
  8. PROAIR HFA [Concomitant]
     Active Substance: ALBUTEROL SULFATE
     Indication: HYPERSENSITIVITY
  9. HUMIRA [Suspect]
     Active Substance: ADALIMUMAB
     Route: 058
     Dates: start: 2018
  10. HUMIRA [Suspect]
     Active Substance: ADALIMUMAB
     Route: 058
     Dates: start: 20180418, end: 201806
  11. DULOXETINE. [Concomitant]
     Active Substance: DULOXETINE
     Indication: DEPRESSION
  12. FOLIC ACID. [Concomitant]
     Active Substance: FOLIC ACID
     Indication: VITAMIN SUPPLEMENTATION
  13. ALPRAZOLAM. [Concomitant]
     Active Substance: ALPRAZOLAM
     Indication: ANXIETY
  14. PREDNISONE. [Concomitant]
     Active Substance: PREDNISONE
     Indication: RHEUMATOID ARTHRITIS
  15. FLUTICASONE. [Concomitant]
     Active Substance: FLUTICASONE
     Indication: HYPERSENSITIVITY
  16. HUMIRA [Suspect]
     Active Substance: ADALIMUMAB
     Indication: RHEUMATOID ARTHRITIS
     Route: 058
     Dates: start: 20161109

REACTIONS (25)
  - Hypertension [Recovered/Resolved]
  - Osteoporosis [Not Recovered/Not Resolved]
  - Procedural pain [Not Recovered/Not Resolved]
  - Hypoaesthesia [Unknown]
  - Sinusitis [Unknown]
  - Sciatica [Not Recovered/Not Resolved]
  - Pain [Unknown]
  - Goitre [Recovered/Resolved]
  - Hand deformity [Recovering/Resolving]
  - Weight increased [Unknown]
  - Device dislocation [Unknown]
  - Medical device site swelling [Unknown]
  - Joint range of motion decreased [Unknown]
  - Chest discomfort [Recovered/Resolved]
  - Hypoaesthesia [Unknown]
  - Device loosening [Unknown]
  - Tenderness [Recovering/Resolving]
  - Chest pain [Not Recovered/Not Resolved]
  - Sensitivity to weather change [Unknown]
  - Sneezing [Unknown]
  - Procedural pain [Recovering/Resolving]
  - Sinus headache [Unknown]
  - Pain in extremity [Not Recovered/Not Resolved]
  - Mass [Unknown]
  - Rheumatoid arthritis [Recovering/Resolving]

NARRATIVE: CASE EVENT DATE: 201706
